FAERS Safety Report 8888329 (Version 4)
Quarter: 2013Q1

REPORT INFORMATION
  Report Type: Spontaneous
  Country: US (occurrence: US)
  Receive Date: 20121106
  Receipt Date: 20130123
  Transmission Date: 20140127
  Serious: No
  Sender: FDA-Public Use
  Company Number: US-PFIZER INC-2012274023

PATIENT
  Age: 62 Year
  Sex: Male

DRUGS (3)
  1. INLYTA [Suspect]
     Indication: RENAL CANCER
     Dosage: 5 MG, 2X/DAY
     Dates: start: 201107
  2. INLYTA [Suspect]
     Indication: RENAL CELL CARCINOMA
     Dosage: UNK
     Dates: start: 201107
  3. INLYTA [Suspect]
     Dosage: UNK
     Dates: start: 201207

REACTIONS (10)
  - Dry mouth [Unknown]
  - Decreased appetite [Unknown]
  - Oral pain [Unknown]
  - Dysphonia [Unknown]
  - Hyperkeratosis [Unknown]
  - Constipation [Unknown]
  - Dry throat [Unknown]
  - Dry skin [Unknown]
  - Asthenia [Unknown]
  - Thirst [Unknown]
